FAERS Safety Report 16140491 (Version 1)
Quarter: 2019Q2

REPORT INFORMATION
  Report Type: Spontaneous
  Country: US (occurrence: US)
  Receive Date: 20190401
  Receipt Date: 20190401
  Transmission Date: 20190711
  Serious: No
  Sender: FDA-Public Use
  Company Number: US-SEPTODONT-201804902

PATIENT
  Age: 66 Year
  Sex: Female

DRUGS (1)
  1. 2% XYLOCAINE WITH EPI 1:100:000 (EPINEPHRINE BITARTRATE\LIDOCAINE HYDROCHLORIDE) [Suspect]
     Active Substance: EPINEPHRINE BITARTRATE\LIDOCAINE HYDROCHLORIDE
     Indication: DENTAL LOCAL ANAESTHESIA
     Dosage: GAVE INJECTION OF (1) CARP AT SITE OF TOOTH #12
     Route: 004
     Dates: start: 20181113, end: 20181113

REACTIONS (1)
  - Drug ineffective [Recovered/Resolved]

NARRATIVE: CASE EVENT DATE: 20181113
